FAERS Safety Report 12491445 (Version 1)
Quarter: 2016Q2

REPORT INFORMATION
  Report Type: Report from Study
  Country: BR (occurrence: BR)
  Receive Date: 20160623
  Receipt Date: 20160623
  Transmission Date: 20160815
  Serious: Yes (Other)
  Sender: FDA-Public Use
  Company Number: BR-ROCHE-1780968

PATIENT
  Sex: Female
  Weight: 61 kg

DRUGS (1)
  1. ACTEMRA [Suspect]
     Active Substance: TOCILIZUMAB
     Indication: RHEUMATOID ARTHRITIS
     Route: 042
     Dates: start: 20160415

REACTIONS (5)
  - Hepatic steatosis [Unknown]
  - Diabetes mellitus [Unknown]
  - Urinary tract infection [Recovering/Resolving]
  - Thyroid disorder [Unknown]
  - Depression [Unknown]
